FAERS Safety Report 12762249 (Version 1)
Quarter: 2016Q3

REPORT INFORMATION
  Report Type: Report from Study
  Country: CA (occurrence: CA)
  Receive Date: 20160920
  Receipt Date: 20160920
  Transmission Date: 20161109
  Serious: Yes (Other)
  Sender: FDA-Public Use
  Company Number: CA-MEDA-2016090037

PATIENT
  Sex: Female

DRUGS (4)
  1. TRILEPTAL [Concomitant]
     Active Substance: OXCARBAZEPINE
  2. SABRIL [Concomitant]
     Active Substance: VIGABATRIN
  3. FELBAMATE. [Suspect]
     Active Substance: FELBAMATE
     Indication: EPILEPSY
     Route: 048
  4. MOGADON [Concomitant]
     Active Substance: NITRAZEPAM

REACTIONS (1)
  - Petit mal epilepsy [Unknown]
